FAERS Safety Report 7553414-5 (Version None)
Quarter: 2011Q2

REPORT INFORMATION
  Report Type: 
  Country: None (occurrence: None)
  Receive Date: 20110614
  Receipt Date: 20110614
  Transmission Date: 20111010
  Serious: Yes (Death)
  Sender: FDA-Public Use
  Company Number: None

PATIENT
  Sex: Female
  Weight: 52.1637 kg

DRUGS (15)
  1. HYDRALAZINE HCL [Concomitant]
  2. ALBUTEROL SULFATE AUTOHALER [Concomitant]
  3. ZOLPIDEM [Concomitant]
  4. ALLOPURINOL [Concomitant]
  5. RANITIDINE [Concomitant]
  6. TOVIAZ [Suspect]
     Indication: HYPERTONIC BLADDER
     Dosage: 4MG DAILY PO DIED BEFORE STARTING MED
     Route: 048
  7. PREDNISONE [Concomitant]
  8. MYFORTIC [Concomitant]
  9. METOPROLOL TARTRATE [Concomitant]
  10. LIPITOR [Concomitant]
  11. FERROUS SULFATE TAB [Concomitant]
  12. FOLIC ACID [Concomitant]
  13. ASPIRIN [Concomitant]
  14. RENAL [Concomitant]
  15. MEGESTROL ACETATE [Concomitant]

REACTIONS (1)
  - NO ADVERSE EVENT [None]
